FAERS Safety Report 16699520 (Version 1)
Quarter: 2019Q3

REPORT INFORMATION
  Report Type: Spontaneous
  Country: CN (occurrence: CN)
  Receive Date: 20190813
  Receipt Date: 20190813
  Transmission Date: 20191004
  Serious: Yes (Hospitalization)
  Sender: FDA-Public Use
  Company Number: CN-PFIZER INC-2019345872

PATIENT
  Age: 25 Year
  Sex: Male
  Weight: 63 kg

DRUGS (4)
  1. SODIUM CHLORIDE. [Concomitant]
     Active Substance: SODIUM CHLORIDE
     Indication: VEHICLE SOLUTION USE
     Dosage: 500.000 ML, 1X/DAY
     Route: 041
     Dates: start: 20190723, end: 20190723
  2. CYTARABINE. [Suspect]
     Active Substance: CYTARABINE
     Indication: NON-HODGKIN^S LYMPHOMA
     Dosage: 3.000 G, 2X/DAY
     Route: 041
     Dates: start: 20190724, end: 20190726
  3. METHOTREXATE. [Suspect]
     Active Substance: METHOTREXATE
     Indication: NON-HODGKIN^S LYMPHOMA
     Dosage: 1.730 G, 1X/DAY
     Route: 041
     Dates: start: 20190723, end: 20190723
  4. SODIUM CHLORIDE. [Concomitant]
     Active Substance: SODIUM CHLORIDE
     Dosage: 250 ML, 2X/DAY
     Route: 041
     Dates: start: 20190724, end: 20190726

REACTIONS (8)
  - Diarrhoea [Recovering/Resolving]
  - Scrotal ulcer [Recovering/Resolving]
  - Swelling [Recovering/Resolving]
  - Mouth ulceration [Recovering/Resolving]
  - Erythema [Recovering/Resolving]
  - Upper gastrointestinal haemorrhage [Recovering/Resolving]
  - Nausea [Recovering/Resolving]
  - Vomiting [Recovering/Resolving]

NARRATIVE: CASE EVENT DATE: 20190724
